FAERS Safety Report 16857735 (Version 1)
Quarter: 2019Q3

REPORT INFORMATION
  Report Type: Report from Study
  Country: US (occurrence: US)
  Receive Date: 20190926
  Receipt Date: 20190926
  Transmission Date: 20191005
  Serious: Yes (Other)
  Sender: FDA-Public Use
  Company Number: US-ASTRAZENECA-2019SF24556

PATIENT
  Age: 27389 Day
  Sex: Female
  Weight: 56.7 kg

DRUGS (7)
  1. TAGRISSO [Suspect]
     Active Substance: OSIMERTINIB
     Indication: LUNG CARCINOMA CELL TYPE UNSPECIFIED STAGE 0
     Route: 048
     Dates: start: 20190805
  2. CLINDAMYCIN PHOSPHATE. [Concomitant]
     Active Substance: CLINDAMYCIN PHOSPHATE
  3. DOCUSATE [Concomitant]
     Active Substance: DOCUSATE
  4. TAGRISSO [Suspect]
     Active Substance: OSIMERTINIB
     Indication: LUNG NEOPLASM MALIGNANT
     Route: 048
     Dates: start: 20190805
  5. OXYCODONE [Concomitant]
     Active Substance: OXYCODONE
  6. GABAPENTIN. [Concomitant]
     Active Substance: GABAPENTIN
  7. IBUPROFEN. [Concomitant]
     Active Substance: IBUPROFEN
     Dosage: PRN200.0MG UNKNOWN
     Route: 048

REACTIONS (4)
  - Epistaxis [Not Recovered/Not Resolved]
  - Nausea [Recovered/Resolved]
  - Rash [Recovering/Resolving]
  - Vitreous floaters [Unknown]

NARRATIVE: CASE EVENT DATE: 20190814
